FAERS Safety Report 16266019 (Version 4)
Quarter: 2019Q3

REPORT INFORMATION
  Report Type: Spontaneous
  Country: JP (occurrence: JP)
  Receive Date: 20190502
  Receipt Date: 20190909
  Transmission Date: 20191004
  Serious: Yes (Life-Threatening, Hospitalization)
  Sender: FDA-Public Use
  Company Number: PHHY2019JP099297

PATIENT
  Age: 66 Year
  Sex: Male
  Weight: 53 kg

DRUGS (5)
  1. CUBICIN [Suspect]
     Active Substance: DAPTOMYCIN
     Dosage: QD (TOTAL F ADMINISTERED DOSE: 455 MG)
     Route: 041
     Dates: start: 20190330, end: 20190401
  2. CUBICIN [Suspect]
     Active Substance: DAPTOMYCIN
     Indication: STAPHYLOCOCCAL INFECTION
     Dosage: 455 MG, QD
     Route: 041
     Dates: start: 20181113, end: 20181119
  3. TEICOPLANIN [Concomitant]
     Active Substance: TEICOPLANIN
     Indication: PRODUCT USED FOR UNKNOWN INDICATION
     Dosage: UNK
     Route: 065
     Dates: start: 20181015, end: 20181112
  4. VANCOMYCIN [Suspect]
     Active Substance: VANCOMYCIN
     Indication: INFECTION
     Dosage: 1 G, UNK
     Route: 065
     Dates: start: 20190308, end: 20190330
  5. RIFAMPIN. [Concomitant]
     Active Substance: RIFAMPIN
     Indication: PRODUCT USED FOR UNKNOWN INDICATION
     Dosage: UNK
     Route: 065
     Dates: start: 20181016, end: 20181116

REACTIONS (7)
  - Enanthema [Unknown]
  - Eosinophil count increased [Recovered/Resolved]
  - Angular cheilitis [Recovered/Resolved]
  - Erythema [Unknown]
  - Generalised erythema [Recovered/Resolved]
  - Eosinophil count increased [Recovered/Resolved]
  - Lip swelling [Recovered/Resolved]

NARRATIVE: CASE EVENT DATE: 201904
